FAERS Safety Report 23084414 (Version 1)
Quarter: 2023Q4

REPORT INFORMATION
  Report Type: Spontaneous
  Country: GB (occurrence: GB)
  Receive Date: 20231019
  Receipt Date: 20231019
  Transmission Date: 20240110
  Serious: Yes (Hospitalization, Other)
  Sender: FDA-Public Use
  Company Number: None

PATIENT
  Age: 68 Year
  Sex: Male

DRUGS (23)
  1. DOXYCYCLINE [Suspect]
     Active Substance: DOXYCYCLINE
     Dosage: UNK
     Dates: start: 20230915, end: 20230919
  2. LANSOPRAZOLE [Suspect]
     Active Substance: LANSOPRAZOLE
     Dosage: UNK
     Dates: start: 20230913, end: 20230920
  3. MEROPENEM [Suspect]
     Active Substance: MEROPENEM
     Dosage: UNK
     Dates: start: 20230908, end: 20230913
  4. NOREPINEPHRINE BITARTRATE [Suspect]
     Active Substance: NOREPINEPHRINE BITARTRATE
     Dosage: UNK
  5. PROPOFOL [Suspect]
     Active Substance: PROPOFOL
     Dosage: UNK
  6. PIPERACILLIN SODIUM\TAZOBACTAM SODIUM [Suspect]
     Active Substance: PIPERACILLIN SODIUM\TAZOBACTAM SODIUM
     Dosage: UNK
     Dates: start: 20230913, end: 20230919
  7. POTASSIUM HYDROXIDE\POTASSIUM PHOSPHATE, DIBASIC\SODIUM PHOSPHATE, DIB [Suspect]
     Active Substance: POTASSIUM HYDROXIDE\POTASSIUM PHOSPHATE, DIBASIC\SODIUM PHOSPHATE, DIBASIC, ANHYDROUS
     Dosage: UNK
  8. ALFENTANIL [Suspect]
     Active Substance: ALFENTANIL
     Dosage: UNK
  9. CALCIUM [Suspect]
     Active Substance: CALCIUM
     Dosage: UNK
  10. GABAPENTIN [Suspect]
     Active Substance: GABAPENTIN
     Dosage: UNK
     Dates: start: 20230912, end: 20230919
  11. GENTAMICIN [Suspect]
     Active Substance: GENTAMICIN
     Dosage: UNK
     Dates: start: 20230908, end: 20230908
  12. CALCIUM CHLORIDE\POTASSIUM CHLORIDE\SODIUM CHLORIDE\SODIUM LACTATE [Suspect]
     Active Substance: CALCIUM CHLORIDE\POTASSIUM CHLORIDE\SODIUM CHLORIDE\SODIUM LACTATE
     Dosage: UNK
  13. HEPARIN [Suspect]
     Active Substance: HEPARIN SODIUM
     Dosage: CONTINUOUS INFUSION. 16/9 16:00 - 06:00 18/9. THEN RESTARTED 18/9 21:00-19/9 04:00; ;
     Dates: start: 20230916, end: 20230917
  14. LEVOFLOXACIN [Suspect]
     Active Substance: LEVOFLOXACIN
     Dosage: 500 MG, 2X/DAY
     Dates: start: 20230908, end: 20230918
  15. LEVOFLOXACIN [Suspect]
     Active Substance: LEVOFLOXACIN
     Dosage: 250 MG, 1X/DAY
     Dates: start: 20230919, end: 20230921
  16. MAGNESIUM [Suspect]
     Active Substance: MAGNESIUM
     Dosage: UNK
  17. NICOTINE [Suspect]
     Active Substance: NICOTINE
     Dosage: UNK
     Dates: start: 20230911, end: 20230919
  18. OMEPRAZOLE [Suspect]
     Active Substance: OMEPRAZOLE
     Dosage: UNK
     Dates: start: 20230908, end: 20230912
  19. OXYCODONE [Suspect]
     Active Substance: OXYCODONE
     Dosage: UNK
     Dates: start: 20230912, end: 20230918
  20. ASCORBIC ACID\NIACINAMIDE\PYRIDOXINE HYDROCHLORIDE\RIBOFLAVIN\THIAMINE [Suspect]
     Active Substance: ASCORBIC ACID\NIACINAMIDE\PYRIDOXINE HYDROCHLORIDE\RIBOFLAVIN\THIAMINE HYDROCHLORIDE
     Dosage: UNK
     Dates: start: 20230908, end: 20230922
  21. ACETAMINOPHEN [Suspect]
     Active Substance: ACETAMINOPHEN
     Dosage: UNK
     Dates: start: 20230908
  22. SODIUM PHOSPHATE, MONOBASIC, ANHYDROUS [Suspect]
     Active Substance: SODIUM PHOSPHATE, MONOBASIC, ANHYDROUS
     Dosage: UNK
     Dates: start: 20230910, end: 20230914
  23. POTASSIUM CHLORIDE [Suspect]
     Active Substance: POTASSIUM CHLORIDE
     Dosage: UNK

REACTIONS (1)
  - Methaemoglobinaemia [Recovered/Resolved]

NARRATIVE: CASE EVENT DATE: 20230918
